FAERS Safety Report 10073218 (Version 1)
Quarter: 2014Q2

REPORT INFORMATION
  Report Type: Spontaneous
  Country: US (occurrence: US)
  Receive Date: 20140411
  Receipt Date: 20140411
  Transmission Date: 20141212
  Serious: Yes (Hospitalization)
  Sender: FDA-Public Use
  Company Number: US-VIIV HEALTHCARE LIMITED-A1068063A

PATIENT
  Age: 73 Year
  Sex: Male

DRUGS (22)
  1. EPIVIR [Suspect]
     Indication: HIV INFECTION
     Dosage: 300MG PER DAY
     Route: 048
     Dates: start: 2011
  2. LAMIVUDINE-HIV [Suspect]
     Indication: PRODUCT USED FOR UNKNOWN INDICATION
  3. PREZISTA [Concomitant]
  4. NORVIR [Concomitant]
  5. SUSTIVA [Concomitant]
  6. ATIVAN [Concomitant]
  7. FAMOTIDINE [Concomitant]
  8. TRAZODONE [Concomitant]
  9. AMLODIPINE [Concomitant]
  10. NORCO [Concomitant]
  11. BABY ASPIRIN [Concomitant]
  12. ATENOLOL [Concomitant]
  13. BUPROPION [Concomitant]
  14. CITALOPRAM [Concomitant]
  15. FUROSEMIDE [Concomitant]
  16. HYDROCHLOROTHIAZIDE [Concomitant]
  17. HYOSCYAMINE [Concomitant]
  18. SUMATRIPTAN [Concomitant]
  19. LISINOPRIL [Concomitant]
  20. MELOXICAM [Concomitant]
  21. METHYLPHENIDATE [Concomitant]
  22. MULTIVITAMINS [Concomitant]

REACTIONS (1)
  - Abdominal pain upper [Recovered/Resolved]
